FAERS Safety Report 4883742-3 (Version None)
Quarter: 2006Q1

REPORT INFORMATION
  Report Type: 
  Country: None (occurrence: None)
  Receive Date: 20060118
  Receipt Date: 20060106
  Transmission Date: 20060701
  Serious: Yes (Hospitalization)
  Sender: FDA-Public Use
  Company Number: JP-ROCHE-431661

PATIENT
  Age: 24 Month
  Sex: Female

DRUGS (6)
  1. TAMIFLU [Suspect]
     Indication: INFLUENZA
     Dosage: FORM: DRY SYRUP.
     Route: 048
     Dates: start: 20041225
  2. BANAN [Concomitant]
     Route: 048
     Dates: start: 20041225
  3. ASVERIN [Concomitant]
     Route: 048
     Dates: start: 20041225
  4. MUCODYNE [Concomitant]
     Route: 048
     Dates: start: 20041225
  5. IFRASARL [Concomitant]
     Dosage: NAME REPORTED AS IFRASARL.
     Route: 048
     Dates: start: 20041225
  6. MEPTIN [Concomitant]
     Route: 048
     Dates: start: 20041225

REACTIONS (1)
  - VASCULAR PURPURA [None]
